FAERS Safety Report 5298447-7 (Version None)
Quarter: 2007Q2

REPORT INFORMATION
  Report Type: 
  Country: None (occurrence: None)
  Receive Date: 20070409
  Receipt Date: 20070330
  Transmission Date: 20071010
  Serious: Yes (Hospitalization, Other)
  Sender: FDA-Public Use
  Company Number: 2007SP006024

PATIENT
  Age: 55 Year
  Sex: Female

DRUGS (2)
  1. PEG-INTRON [Suspect]
     Indication: HEPATITIS C
     Dosage: ; SC
     Route: 058
     Dates: start: 20061229
  2. RIBAVIRIN [Suspect]
     Indication: HEPATITIS C
     Dosage: ; PO
     Route: 048
     Dates: start: 20061229

REACTIONS (8)
  - BLOOD POTASSIUM DECREASED [None]
  - FATIGUE [None]
  - INFECTED SKIN ULCER [None]
  - MEMORY IMPAIRMENT [None]
  - PLATELET COUNT DECREASED [None]
  - RED BLOOD CELL COUNT DECREASED [None]
  - SCRATCH [None]
  - STAPHYLOCOCCAL INFECTION [None]
